FAERS Safety Report 6749653-3 (Version None)
Quarter: 2010Q2

REPORT INFORMATION
  Report Type: 
  Country: None (occurrence: None)
  Receive Date: 20100601
  Receipt Date: 20100521
  Transmission Date: 20101027
  Serious: Yes (Other)
  Sender: FDA-Public Use
  Company Number: B0656566A

PATIENT
  Age: 32 Year
  Sex: Female

DRUGS (1)
  1. AMOXICILLIN [Suspect]
     Indication: INFLUENZA
     Route: 048
     Dates: start: 20100513, end: 20100515

REACTIONS (2)
  - EAR PAIN [None]
  - SENSITIVITY OF TEETH [None]
